FAERS Safety Report 9743146 (Version 2)
Quarter: 2015Q3

REPORT INFORMATION
  Report Type: Spontaneous
  Country: US (occurrence: US)
  Receive Date: 20131210
  Receipt Date: 20150804
  Transmission Date: 20151125
  Serious: No
  Sender: FDA-Public Use
  Company Number: US-GILEAD-2009-0024436

PATIENT
  Age: 85 Year
  Sex: Female
  Weight: 64.86 kg

DRUGS (8)
  1. LETAIRIS [Suspect]
     Active Substance: AMBRISENTAN
     Indication: PULMONARY ARTERIAL HYPERTENSION
     Route: 048
     Dates: start: 20090813
  2. FELODIPINE. [Concomitant]
     Active Substance: FELODIPINE
  3. PROPAFENONE. [Concomitant]
     Active Substance: PROPAFENONE
  4. LASIX [Concomitant]
     Active Substance: FUROSEMIDE
  5. DIOVAN [Concomitant]
     Active Substance: VALSARTAN
  6. K-DUR [Concomitant]
     Active Substance: POTASSIUM CHLORIDE
  7. METOPROLOL [Concomitant]
     Active Substance: METOPROLOL
  8. NEXIUM [Concomitant]
     Active Substance: ESOMEPRAZOLE MAGNESIUM

REACTIONS (3)
  - Blood creatinine increased [Unknown]
  - Oedema peripheral [Unknown]
  - Blood urea increased [Unknown]
